FAERS Safety Report 6495423-3 (Version None)
Quarter: 2009Q4

REPORT INFORMATION
  Report Type: 
  Country: None (occurrence: None)
  Receive Date: 20091214
  Receipt Date: 20090720
  Transmission Date: 20100525
  Serious: No
  Sender: FDA-Public Use
  Company Number: US-BRISTOL-MYERS SQUIBB COMPANY-14670210

PATIENT
  Age: 2 Decade
  Sex: Male

DRUGS (5)
  1. ABILIFY [Suspect]
     Dosage: DURATION OF THERAPY: APPROX 2 YR
  2. SEROQUEL [Suspect]
  3. LAMICTAL [Concomitant]
  4. FLUVOXAMINE MALEATE [Concomitant]
  5. TRILEPTAL [Concomitant]

REACTIONS (1)
  - BLOOD GLUCOSE INCREASED [None]
